FAERS Safety Report 17880312 (Version 2)
Quarter: 2020Q2

REPORT INFORMATION
  Report Type: Report from Study
  Country: DE (occurrence: DE)
  Receive Date: 20200610
  Receipt Date: 20200617
  Transmission Date: 20200714
  Serious: Yes (Hospitalization)
  Sender: FDA-Public Use
  Company Number: DE-ROCHE-2617183

PATIENT
  Age: 59 Year
  Sex: Male
  Weight: 72 kg

DRUGS (19)
  1. CARBOPLATIN. [Suspect]
     Active Substance: CARBOPLATIN
     Indication: NON-SMALL CELL LUNG CANCER
     Dosage: 6 MG/MIN*ML?MOST RECENT DOSE ON 12/MAY/2020
     Route: 042
     Dates: start: 20200324
  2. FOLSAN [Concomitant]
     Active Substance: FOLIC ACID
     Dosage: ONGOING
     Route: 048
  3. FERRO-SANOL DUODENAL [Concomitant]
     Active Substance: FERROUS GLYCINE SULFATE
     Dosage: ONGOING
     Route: 048
  4. ATEZOLIZUMAB. [Suspect]
     Active Substance: ATEZOLIZUMAB
     Indication: NON-SMALL CELL LUNG CANCER
     Dosage: MOST RECENT DOSE ON 12/MAY/2020
     Route: 042
     Dates: start: 20200324
  5. NAB-PACLITAXEL [Suspect]
     Active Substance: PACLITAXEL
     Indication: NON-SMALL CELL LUNG CANCER
     Dosage: MOST RECENT DOSE ON 12/MAY/2020
     Route: 042
     Dates: start: 20200324
  6. ALOXI [Concomitant]
     Active Substance: PALONOSETRON HYDROCHLORIDE
     Dosage: ONGOING
     Route: 042
     Dates: start: 20200324
  7. LYRICA [Concomitant]
     Active Substance: PREGABALIN
     Dosage: ONGOING
     Route: 048
  8. DEXAMETHASON [DEXAMETHASONE] [Concomitant]
     Active Substance: DEXAMETHASONE
     Dosage: ONGOING
     Route: 042
     Dates: start: 20200324
  9. XGEVA [Concomitant]
     Active Substance: DENOSUMAB
     Dosage: ONGOING
     Route: 058
     Dates: start: 20200324
  10. PREDNISOLONE. [Concomitant]
     Active Substance: PREDNISOLONE
     Dosage: ONGOING
     Route: 048
  11. PANTOZOL [Concomitant]
     Active Substance: PANTOPRAZOLE SODIUM
     Dosage: ONGOING
     Route: 048
  12. CALCIGEN D [Concomitant]
     Active Substance: CALCIUM CARBONATE\CHOLECALCIFEROL
     Dosage: ONGOING
     Route: 048
     Dates: start: 20200324
  13. IVEMEND [Concomitant]
     Active Substance: FOSAPREPITANT DIMEGLUMINE
     Dosage: ONGOING
     Route: 042
     Dates: start: 20200324
  14. MOVICOL [Concomitant]
     Active Substance: POLYETHYLENE GLYCOL 3350\POTASSIUM CHLORIDE\SODIUM BICARBONATE\SODIUM CHLORIDE
     Dosage: ONGOING
     Route: 048
  15. RAMIPRIL. [Concomitant]
     Active Substance: RAMIPRIL
     Indication: HYPERTENSION
     Dosage: ONGOING
     Route: 048
  16. ASPIRIN. [Concomitant]
     Active Substance: ASPIRIN
     Dosage: ONGOING
     Route: 048
  17. INNOHEP [Concomitant]
     Active Substance: TINZAPARIN SODIUM
     Dosage: ONGOING
     Route: 058
  18. ATORVASTATIN [Concomitant]
     Active Substance: ATORVASTATIN
     Indication: HYPERLIPIDAEMIA
     Dosage: ONGOING
     Route: 048
  19. DUROGESIC [Concomitant]
     Active Substance: FENTANYL
     Dosage: 15 UG/ H; ONGOING
     Route: 062

REACTIONS (4)
  - Phantom limb syndrome [Not Recovered/Not Resolved]
  - Escherichia infection [Not Recovered/Not Resolved]
  - Decreased appetite [Recovered/Resolved]
  - Sleep disorder [Unknown]

NARRATIVE: CASE EVENT DATE: 20200502
